FAERS Safety Report 9357618 (Version 1)
Quarter: 2013Q2

REPORT INFORMATION
  Report Type: Report from Study
  Country: JP (occurrence: JP)
  Receive Date: 20130620
  Receipt Date: 20130620
  Transmission Date: 20140414
  Serious: Yes (Other)
  Sender: FDA-Public Use
  Company Number: JP-ROCHE-1239383

PATIENT
  Age: 65 Year
  Sex: Male

DRUGS (6)
  1. RANIBIZUMAB [Suspect]
     Indication: AGE-RELATED MACULAR DEGENERATION
     Route: 050
     Dates: start: 20090605
  2. RANIBIZUMAB [Suspect]
     Route: 050
     Dates: start: 20090703
  3. RANIBIZUMAB [Suspect]
     Route: 050
     Dates: start: 20090806
  4. RANIBIZUMAB [Suspect]
     Route: 050
     Dates: start: 20100520
  5. GATIFLO [Concomitant]
  6. CRAVIT [Concomitant]

REACTIONS (1)
  - Cerebral infarction [Recovered/Resolved with Sequelae]
